FAERS Safety Report 20504321 (Version 2)
Quarter: 2022Q1

REPORT INFORMATION
  Report Type: Other
  Country: US (occurrence: US)
  Receive Date: 20220222
  Receipt Date: 20220322
  Transmission Date: 20220423
  Serious: Yes (Hospitalization, Other)
  Sender: FDA-Public Use
  Company Number: US-Covis Pharma GmbH-2022COV00493

PATIENT
  Age: 0 Year
  Sex: Female
  Weight: 2.4 kg

DRUGS (1)
  1. MAKENA [Suspect]
     Active Substance: HYDROXYPROGESTERONE CAPROATE
     Indication: Foetal exposure during pregnancy
     Route: 064
     Dates: start: 20211027, end: 20220129

REACTIONS (4)
  - Respiratory distress [Unknown]
  - Foetal malpresentation [Recovered/Resolved]
  - Umbilical cord prolapse [Recovered/Resolved]
  - Premature baby [Recovered/Resolved]

NARRATIVE: CASE EVENT DATE: 20220130
